FAERS Safety Report 4876358-6 (Version None)
Quarter: 2005Q4

REPORT INFORMATION
  Report Type: 
  Country: None (occurrence: None)
  Receive Date: 20051206
  Receipt Date: 20050804
  Transmission Date: 20060501
  Serious: No
  Sender: FDA-Public Use
  Company Number: USA0508104696

PATIENT
  Age: 44 Year
  Sex: Male

DRUGS (5)
  1. CYMBALTA [Suspect]
     Indication: DEPRESSION
     Dosage: 60 MG DAY
     Dates: start: 20041101
  2. DEPAKOTE [Concomitant]
  3. TRAZODONE [Concomitant]
  4. LITHIUM [Concomitant]
  5. FLUOXETINE [Concomitant]

REACTIONS (3)
  - AGITATION [None]
  - MANIA [None]
  - TREMOR [None]
